FAERS Safety Report 7870787-4 (Version None)
Quarter: 2011Q4

REPORT INFORMATION
  Report Type: 
  Country: None (occurrence: None)
  Receive Date: 20111029
  Receipt Date: 20110221
  Transmission Date: 20120403
  Serious: No
  Sender: FDA-Public Use
  Company Number: US-AMGEN-USASP2011010125

PATIENT
  Age: 70 Year
  Sex: Male

DRUGS (3)
  1. ENBREL [Suspect]
     Indication: PSORIATIC ARTHROPATHY
     Dosage: 50 MG, QWK
     Dates: start: 20050101
  2. ENBREL [Suspect]
     Indication: PSORIASIS
  3. ENBREL [Suspect]
     Indication: OFF LABEL USE

REACTIONS (3)
  - BLOOD CREATININE ABNORMAL [None]
  - INJECTION SITE PAIN [None]
  - PAIN IN EXTREMITY [None]
